FAERS Safety Report 7475705-9 (Version None)
Quarter: 2011Q2

REPORT INFORMATION
  Report Type: 
  Country: None (occurrence: None)
  Receive Date: 20110512
  Receipt Date: 20110502
  Transmission Date: 20111010
  Serious: Yes (Hospitalization)
  Sender: FDA-Public Use
  Company Number: IT-ELI_LILLY_AND_COMPANY-IT201105000194

PATIENT
  Sex: Female

DRUGS (12)
  1. HUMALOG [Suspect]
     Indication: DIABETES MELLITUS
     Dosage: 1 DF, QD
     Route: 058
     Dates: start: 20110106, end: 20110406
  2. LANTUS [Concomitant]
     Indication: DIABETES MELLITUS
     Dosage: 1 DF, QD
     Route: 058
     Dates: start: 20110106, end: 20110406
  3. VOLTAREN                                /SCH/ [Concomitant]
     Dosage: UNK
  4. DOBETIN [Concomitant]
     Dosage: UNK
  5. CALCIPARINA [Concomitant]
     Dosage: 1 DF, UNK
     Route: 058
  6. ALLOPURINOL [Concomitant]
     Dosage: UNK
  7. FUROSEMIDE [Concomitant]
     Dosage: UNK
  8. TRADONAL [Concomitant]
     Indication: MUSCULOSKELETAL PAIN
     Dosage: 50 MG, PRN
     Dates: start: 20110315, end: 20110406
  9. KANRENOL [Concomitant]
     Dosage: UNK
  10. PLAVIX [Concomitant]
     Dosage: UNK
  11. LOBIVON [Concomitant]
     Dosage: UNK
     Route: 048
  12. EUTIROX [Concomitant]
     Dosage: UNK

REACTIONS (2)
  - ASTHENIA [None]
  - BLOOD GLUCOSE INCREASED [None]
